FAERS Safety Report 7161517-2 (Version None)
Quarter: 2010Q4

REPORT INFORMATION
  Report Type: 
  Country: None (occurrence: None)
  Receive Date: 20101215
  Receipt Date: 20101209
  Transmission Date: 20110411
  Serious: No
  Sender: FDA-Public Use
  Company Number: US-PFIZER INC-HQWYE502223MAY06

PATIENT
  Sex: Male
  Weight: 70.3 kg

DRUGS (3)
  1. EFFEXOR XR [Suspect]
     Dosage: 37.5 MG, DAILY
     Route: 048
     Dates: start: 20060301
  2. EFFEXOR XR [Suspect]
     Dosage: 37.5 MG, 1X/DAY
     Route: 048
     Dates: start: 20060401
  3. EFFEXOR XR [Suspect]
     Dosage: 75 MG, 1X/DAY
     Route: 048
     Dates: start: 20060401

REACTIONS (4)
  - DRUG EFFECT DECREASED [None]
  - DRUG INTOLERANCE [None]
  - DRUG WITHDRAWAL SYNDROME [None]
  - INITIAL INSOMNIA [None]
